FAERS Safety Report 21750994 (Version 1)
Quarter: 2022Q4

REPORT INFORMATION
  Report Type: Spontaneous
  Country: FR (occurrence: FR)
  Receive Date: 20221219
  Receipt Date: 20221219
  Transmission Date: 20230113
  Serious: Yes (Hospitalization, Other)
  Sender: FDA-Public Use
  Company Number: FR-AFSSAPS-MP20223546

PATIENT
  Age: 73 Year
  Sex: Male

DRUGS (8)
  1. GEMCITABINE [Suspect]
     Active Substance: GEMCITABINE
     Indication: Mesothelioma malignant
     Route: 040
     Dates: start: 202209
  2. GEMCITABINE [Suspect]
     Active Substance: GEMCITABINE
     Dosage: CURE ? J1, J8 ET J15 AVEC CURE SUIVANTE APR?S 2 SEMAINES
     Route: 065
     Dates: start: 20220225, end: 20220603
  3. DARBEPOETIN ALFA [Suspect]
     Active Substance: DARBEPOETIN ALFA
     Indication: Anaemia
     Dosage: 150?G LE MERCREDI
     Route: 058
  4. FUROSEMIDE [Concomitant]
     Active Substance: FUROSEMIDE
     Indication: Cardiac failure acute
     Route: 065
  5. SILODOSIN [Concomitant]
     Active Substance: SILODOSIN
     Indication: Prostatomegaly
     Dosage: 8MG LE SOIR
     Route: 048
  6. DUTASTERIDE [Concomitant]
     Active Substance: DUTASTERIDE
     Indication: Prostatomegaly
     Dosage: 0.5MG LE MATIN
     Route: 048
  7. COLCHICINE\OPIUM\TIEMONIUM METHYLSULFATE [Concomitant]
     Active Substance: COLCHICINE\OPIUM\TIEMONIUM METHYLSULFATE
     Indication: Cardiac failure acute
     Dosage: 0.5MG LE MATIN
     Route: 048
     Dates: start: 20220519
  8. RAMIPRIL [Concomitant]
     Active Substance: RAMIPRIL
     Indication: Hypertension
     Dosage: 2.5MG LE MATIN
     Route: 048

REACTIONS (2)
  - Oedema [Recovered/Resolved]
  - Capillary leak syndrome [Recovered/Resolved]

NARRATIVE: CASE EVENT DATE: 20220101
